FAERS Safety Report 14672388 (Version 2)
Quarter: 2018Q2

REPORT INFORMATION
  Report Type: Spontaneous
  Country: JP (occurrence: JP)
  Receive Date: 20180323
  Receipt Date: 20180607
  Transmission Date: 20180711
  Serious: Yes (Hospitalization, Other)
  Sender: FDA-Public Use
  Company Number: JP-ASTELLAS-2014JP024911

PATIENT
  Age: 15 Year
  Sex: Female
  Weight: 46 kg

DRUGS (16)
  1. PREDONINE [Concomitant]
     Active Substance: PREDNISOLONE
     Indication: IMMUNE THROMBOCYTOPENIC PURPURA
     Route: 048
  2. SELBEX [Concomitant]
     Active Substance: TEPRENONE
     Indication: SJOGREN^S SYNDROME
  3. ALFAROL [Concomitant]
     Active Substance: ALFACALCIDOL
     Indication: OSTEOPOROSIS
  4. PROGRAF [Suspect]
     Active Substance: TACROLIMUS\TACROLIMUS ANHYDROUS
     Indication: MIXED CONNECTIVE TISSUE DISEASE
  5. PREDONINE [Concomitant]
     Active Substance: PREDNISOLONE
     Indication: MIXED CONNECTIVE TISSUE DISEASE
     Dosage: UNK UNK, UNKNOWN FREQ.
     Route: 048
     Dates: start: 200609
  6. PREDONINE [Concomitant]
     Active Substance: PREDNISOLONE
     Indication: SJOGREN^S SYNDROME
     Route: 048
  7. PREDONINE [Concomitant]
     Active Substance: PREDNISOLONE
     Route: 048
  8. ALFAROL [Concomitant]
     Active Substance: ALFACALCIDOL
     Indication: IMMUNOSUPPRESSION
     Route: 048
     Dates: start: 20100624
  9. IMURAN [Concomitant]
     Active Substance: AZATHIOPRINE
     Indication: PRODUCT USED FOR UNKNOWN INDICATION
     Dosage: UNK UNK, UNKNOWN FREQ.
     Route: 065
     Dates: start: 20120113
  10. PREDONINE [Concomitant]
     Active Substance: PREDNISOLONE
     Indication: IMMUNOSUPPRESSION
     Route: 048
     Dates: start: 20061205
  11. GAMMAGLOBULIN [Concomitant]
     Active Substance: HUMAN IMMUNOGLOBULIN G
     Indication: IMMUNE THROMBOCYTOPENIC PURPURA
     Dosage: UNK UNK, UNKNOWN FREQ.
     Route: 065
     Dates: start: 200609
  12. PROGRAF [Suspect]
     Active Substance: TACROLIMUS\TACROLIMUS ANHYDROUS
     Indication: IMMUNOSUPPRESSION
     Route: 048
     Dates: start: 20120313, end: 20140926
  13. PROGRAF [Suspect]
     Active Substance: TACROLIMUS\TACROLIMUS ANHYDROUS
     Indication: SJOGREN^S SYNDROME
  14. SELBEX [Concomitant]
     Active Substance: TEPRENONE
     Indication: IMMUNOSUPPRESSION
     Route: 048
     Dates: start: 20100510
  15. BAKTAR [Concomitant]
     Active Substance: SULFAMETHOXAZOLE\TRIMETHOPRIM
     Indication: PRODUCT USED FOR UNKNOWN INDICATION
     Route: 065
  16. PREDONINE [Concomitant]
     Active Substance: PREDNISOLONE
     Route: 048
     Dates: start: 20150115

REACTIONS (3)
  - Off label use [Unknown]
  - Haemolytic uraemic syndrome [Recovering/Resolving]
  - Scleroderma renal crisis [Recovering/Resolving]

NARRATIVE: CASE EVENT DATE: 20120313
